FAERS Safety Report 19013743 (Version 2)
Quarter: 2021Q3

REPORT INFORMATION
  Report Type: Report from Study
  Country: US (occurrence: US)
  Receive Date: 20210315
  Receipt Date: 20210806
  Transmission Date: 20211014
  Serious: Yes (Other)
  Sender: FDA-Public Use
  Company Number: US-BRISTOL-MYERS SQUIBB COMPANY-BMS-2021-022842

PATIENT
  Age: 81 Year
  Sex: Female
  Weight: 50.8 kg

DRUGS (3)
  1. CLOPIDOGREL BISULFATE. [Concomitant]
     Active Substance: CLOPIDOGREL BISULFATE
     Indication: PRODUCT USED FOR UNKNOWN INDICATION
     Dosage: 5 MG DAILY
     Route: 065
  2. APIXABAN [Suspect]
     Active Substance: APIXABAN
     Indication: CEREBROVASCULAR ACCIDENT PROPHYLAXIS
     Dosage: 5 MILLIGRAM, BID
     Route: 048
     Dates: start: 2017
  3. APIXABAN [Suspect]
     Active Substance: APIXABAN
     Dosage: 2.5 MILLIGRAM, BID
     Route: 048

REACTIONS (12)
  - Pain in extremity [Unknown]
  - Arthralgia [Unknown]
  - Myocardial infarction [Unknown]
  - Eating disorder [Recovered/Resolved]
  - Gastrooesophageal reflux disease [Unknown]
  - Gallbladder disorder [Unknown]
  - Weight decreased [Unknown]
  - Asthenia [Unknown]
  - Contusion [Unknown]
  - Fall [Unknown]
  - Tooth fracture [Unknown]
  - Chest pain [Unknown]

NARRATIVE: CASE EVENT DATE: 202012
